FAERS Safety Report 17583685 (Version 4)
Quarter: 2020Q2

REPORT INFORMATION
  Report Type: Spontaneous
  Country: US (occurrence: US)
  Receive Date: 20200326
  Receipt Date: 20200619
  Transmission Date: 20200713
  Serious: No
  Sender: FDA-Public Use
  Company Number: US-GLAXOSMITHKLINE-US2020047792

PATIENT
  Sex: Female

DRUGS (2)
  1. VENTOLIN HFA [Suspect]
     Active Substance: ALBUTEROL SULFATE
     Dosage: UNK
     Route: 055
  2. VENTOLIN HFA [Suspect]
     Active Substance: ALBUTEROL SULFATE
     Indication: PRODUCT USED FOR UNKNOWN INDICATION
     Dosage: UNK
     Route: 055

REACTIONS (11)
  - Tongue erythema [Recovered/Resolved]
  - Underdose [Unknown]
  - Headache [Recovered/Resolved]
  - Drug ineffective [Unknown]
  - Rash erythematous [Recovered/Resolved]
  - Oral discomfort [Recovered/Resolved]
  - Poor quality sleep [Recovered/Resolved]
  - Throat irritation [Recovered/Resolved]
  - Wrong technique in device usage process [Recovered/Resolved]
  - Wheezing [Recovered/Resolved]
  - Product complaint [Unknown]
